FAERS Safety Report 20725577 (Version 1)
Quarter: 2022Q2

REPORT INFORMATION
  Report Type: Report from Study
  Country: CA (occurrence: CA)
  Receive Date: 20220419
  Receipt Date: 20220419
  Transmission Date: 20220721
  Serious: Yes (Hospitalization)
  Sender: FDA-Public Use
  Company Number: CA-TAKEDA-2022TUS025649

PATIENT
  Age: 76 Year
  Sex: Female

DRUGS (16)
  1. VEDOLIZUMAB [Suspect]
     Active Substance: VEDOLIZUMAB
     Indication: Crohn^s disease
     Dosage: 300 MILLIGRAM, Q4WEEKS
     Route: 042
     Dates: start: 20160810
  2. METHOTREXATE [Concomitant]
     Active Substance: METHOTREXATE
     Dosage: 1 MILLIGRAM, 1/WEEK
  3. VITAMIN B12 [Concomitant]
     Active Substance: CYANOCOBALAMIN
     Dosage: 1 MILLIGRAM
  4. PREVACID [Concomitant]
     Active Substance: LANSOPRAZOLE
     Dosage: UNK
  5. CIPRO [Concomitant]
     Active Substance: CIPROFLOXACIN HYDROCHLORIDE
     Dosage: UNK
  6. IMODIUM [Concomitant]
     Active Substance: LOPERAMIDE HYDROCHLORIDE
     Dosage: UNK
  7. OVALE [Concomitant]
     Dosage: UNK
  8. ALENDRONATE [Concomitant]
     Active Substance: ALENDRONATE SODIUM
     Dosage: UNK
  9. CALCIUM [Concomitant]
     Active Substance: CALCIUM
     Dosage: UNK
  10. ESTROGENS [Concomitant]
     Active Substance: ESTROGENS
     Dosage: UNK UNK, QD
  11. PROGESTERONE [Concomitant]
     Active Substance: PROGESTERONE
     Dosage: UNK UNK, QD
  12. MYRBETRIQ [Concomitant]
     Active Substance: MIRABEGRON
     Indication: Urinary incontinence
     Dosage: UNK UNK, QD
  13. TOVIAZ [Concomitant]
     Active Substance: FESOTERODINE FUMARATE
     Indication: Urinary incontinence
     Dosage: UNK UNK, QD
  14. TYLENOL [Concomitant]
     Active Substance: ACETAMINOPHEN
     Indication: Back disorder
     Dosage: UNK
  15. DOMPERIDONE [Concomitant]
     Active Substance: DOMPERIDONE
     Indication: Hernia
     Dosage: 10 MILLIGRAM
  16. LOMOTIL [Concomitant]
     Active Substance: ATROPINE SULFATE\DIPHENOXYLATE HYDROCHLORIDE
     Dosage: UNK

REACTIONS (2)
  - COVID-19 [Recovered/Resolved]
  - Off label use [Unknown]

NARRATIVE: CASE EVENT DATE: 20160810
